FAERS Safety Report 17715405 (Version 1)
Quarter: 2020Q2

REPORT INFORMATION
  Report Type: Spontaneous
  Country: CN (occurrence: CN)
  Receive Date: 20200427
  Receipt Date: 20200427
  Transmission Date: 20200714
  Serious: Yes (Death)
  Sender: FDA-Public Use
  Company Number: CN-HQ SPECIALTY-CN-2020INT000044

PATIENT

DRUGS (4)
  1. CISPLATIN. [Suspect]
     Active Substance: CISPLATIN
     Indication: OESOPHAGEAL SQUAMOUS CELL CARCINOMA
     Dosage: 25 MG/M2, WEEKLY, START 1ST DAY OF RT, 5 OR 6 CYCLES, ON DAYS 1 8, 15, 22, 29, 36
     Route: 065
  2. DOCETAXEL. [Suspect]
     Active Substance: DOCETAXEL
     Indication: OESOPHAGEAL SQUAMOUS CELL CARCINOMA
     Dosage: 25 MG/M2, WEEKLY, START 1ST DAY OF RT, 5 OR 6 CYCLES, ON DAYS 1, 8, 15, 22, 29, 36
     Route: 065
  3. DEXAMETHASONE. [Concomitant]
     Active Substance: DEXAMETHASONE
     Indication: PREMEDICATION
     Dosage: 10 MG, THIRTY MINUTES BEFORE TREATMENT WITH DOCETAXEL
     Route: 030
  4. RADIOTHERAPY [Suspect]
     Active Substance: RADIATION THERAPY
     Indication: OESOPHAGEAL SQUAMOUS CELL CARCINOMA
     Dosage: 61.2 GY IN 34 FRACTIONS OR 50.4 GY IN 28 FRACTIONS, WITH 5 FRACTIONS PER WEEK FOR 6 OR 7 WEEKS
     Route: 050

REACTIONS (1)
  - Pyrexia [Fatal]
